FAERS Safety Report 25908856 (Version 1)
Quarter: 2025Q4

REPORT INFORMATION
  Report Type: Spontaneous
  Country: EU (occurrence: EU)
  Receive Date: 20251011
  Receipt Date: 20251011
  Transmission Date: 20260118
  Serious: Yes (Death, Life-Threatening, Other)
  Sender: AMGEN
  Company Number: EU-AMGEN-ROUSP2025201886

PATIENT

DRUGS (6)
  1. KYPROLIS [Suspect]
     Active Substance: CARFILZOMIB
     Indication: Plasma cell myeloma
     Dosage: 56 MILLIGRAM/SQ. METER (IV (30 MIN) DAYS 1, 2, 8, 9, 15, 16 (20 MG/M2 DAYS 1, 2, CYCLE 1 ONLY)
     Route: 040
  2. KYPROLIS [Suspect]
     Active Substance: CARFILZOMIB
     Indication: Plasma cell myeloma refractory
     Dosage: 70 MILLIGRAM/SQ. METER, QWK
     Route: 040
  3. DEXAMETHASONE [Suspect]
     Active Substance: DEXAMETHASONE
     Indication: Plasma cell myeloma
     Dosage: UNK (40 MG (20 MG FOR PATIENTS }75 YEARS OLD) ORAL OR IV ONCE WEEKLY)
     Route: 048
  4. DEXAMETHASONE [Suspect]
     Active Substance: DEXAMETHASONE
     Indication: Plasma cell myeloma refractory
  5. TOLODODEKIN ALFA [Suspect]
     Active Substance: TOLODODEKIN ALFA
     Indication: Plasma cell myeloma
     Dosage: UNK (8 MG/KG IV DAYS 1, 2, CYCLE 1; 16 MG/KG ONCE WEEKLY FORREMAINING DOSES OF CYCLE 1, 2, THEN EVER
     Route: 040
  6. TOLODODEKIN ALFA [Suspect]
     Active Substance: TOLODODEKIN ALFA
     Indication: Plasma cell myeloma refractory

REACTIONS (14)
  - Death [Fatal]
  - Cardiac failure [Fatal]
  - Acute kidney injury [Unknown]
  - Neuropathy peripheral [Unknown]
  - Myocardial ischaemia [Unknown]
  - Upper respiratory tract infection [Fatal]
  - Infusion related reaction [Unknown]
  - Thrombocytopenia [Unknown]
  - Pneumonia [Unknown]
  - Hypertension [Unknown]
  - Anaemia [Unknown]
  - Diarrhoea [Unknown]
  - Fatigue [Unknown]
  - Dyspnoea [Unknown]
